FAERS Safety Report 7238350-6 (Version None)
Quarter: 2011Q1

REPORT INFORMATION
  Report Type: 
  Country: None (occurrence: None)
  Receive Date: 20110121
  Receipt Date: 20110119
  Transmission Date: 20110831
  Serious: Yes (Death, Hospitalization)
  Sender: FDA-Public Use
  Company Number: GR-BRISTOL-MYERS SQUIBB COMPANY-15493141

PATIENT
  Age: 70 Year
  Sex: Female
  Weight: 108 kg

DRUGS (2)
  1. TAXOL [Suspect]
     Indication: BREAST CANCER
     Route: 042
     Dates: start: 20080115, end: 20080226
  2. AVASTIN [Suspect]
     Indication: BREAST CANCER
     Dates: start: 20080115, end: 20080226

REACTIONS (2)
  - RESPIRATORY FAILURE [None]
  - PYREXIA [None]
